FAERS Safety Report 23915494 (Version 4)
Quarter: 2025Q2

REPORT INFORMATION
  Report Type: Report from Study
  Country: CN (occurrence: CN)
  Receive Date: 20240529
  Receipt Date: 20250617
  Transmission Date: 20250717
  Serious: Yes (Other)
  Sender: ROCHE
  Company Number: CN-ROCHE-3569274

PATIENT
  Age: 73 Year
  Sex: Male
  Weight: 65.5 kg

DRUGS (36)
  1. POLATUZUMAB VEDOTIN [Suspect]
     Active Substance: POLATUZUMAB VEDOTIN
     Indication: Diffuse large B-cell lymphoma
     Route: 042
     Dates: start: 20230615, end: 20230615
  2. POLATUZUMAB VEDOTIN [Suspect]
     Active Substance: POLATUZUMAB VEDOTIN
     Route: 042
     Dates: start: 20230822, end: 20230822
  3. RITUXIMAB [Suspect]
     Active Substance: RITUXIMAB
     Indication: Diffuse large B-cell lymphoma
     Route: 042
     Dates: start: 20230821, end: 20230821
  4. RITUXIMAB [Suspect]
     Active Substance: RITUXIMAB
     Route: 042
     Dates: start: 20230614, end: 20230614
  5. LENALIDOMIDE [Suspect]
     Active Substance: LENALIDOMIDE
     Indication: Diffuse large B-cell lymphoma
     Route: 048
     Dates: start: 20230615, end: 20230624
  6. ZANUBRUTINIB [Suspect]
     Active Substance: ZANUBRUTINIB
     Indication: Diffuse large B-cell lymphoma
     Route: 048
     Dates: start: 20230615, end: 20230715
  7. DINUTUXIMAB [Suspect]
     Active Substance: DINUTUXIMAB
     Indication: Diffuse large B-cell lymphoma
     Route: 042
     Dates: start: 20230614, end: 20230614
  8. DINUTUXIMAB [Suspect]
     Active Substance: DINUTUXIMAB
     Route: 042
     Dates: start: 20230822, end: 20230822
  9. SULFAMETHOXAZOLE [Concomitant]
     Active Substance: SULFAMETHOXAZOLE
     Dosage: 1 TABLET
     Route: 048
     Dates: start: 202306
  10. SULFAMETHOXAZOLE [Concomitant]
     Active Substance: SULFAMETHOXAZOLE
     Route: 048
     Dates: start: 20230619
  11. ENTECAVIR [Concomitant]
     Active Substance: ENTECAVIR
     Route: 048
     Dates: start: 202306
  12. leucogen tablet [Concomitant]
     Route: 048
     Dates: start: 20230615
  13. ACYCLOVIR [Concomitant]
     Active Substance: ACYCLOVIR
     Route: 048
     Dates: start: 20230615
  14. tramadol hydrochloride sustained release tablet [Concomitant]
     Route: 048
     Dates: start: 20230624
  15. Cefaclor extended-release tablets [Concomitant]
     Route: 048
     Dates: start: 20230719
  16. POTASSIUM CHLORIDE [Concomitant]
     Active Substance: POTASSIUM CHLORIDE
     Route: 042
     Dates: start: 20230820, end: 20230830
  17. POTASSIUM CHLORIDE [Concomitant]
     Active Substance: POTASSIUM CHLORIDE
     Route: 042
     Dates: start: 20230715, end: 20230715
  18. Compound potassium hydrogen phosphate injection [Concomitant]
     Route: 042
     Dates: start: 20230820, end: 20230830
  19. Compound potassium hydrogen phosphate injection [Concomitant]
     Route: 042
     Dates: start: 20230715, end: 20230719
  20. PROMETHAZINE [Concomitant]
     Active Substance: PROMETHAZINE HYDROCHLORIDE
     Route: 030
     Dates: start: 20230821, end: 20230823
  21. PROMETHAZINE [Concomitant]
     Active Substance: PROMETHAZINE HYDROCHLORIDE
  22. compound paracetamol tablet [Concomitant]
     Route: 048
     Dates: start: 20230821, end: 20230823
  23. ALBUMIN HUMAN [Concomitant]
     Active Substance: ALBUMIN HUMAN
     Route: 042
     Dates: start: 20230823, end: 20230830
  24. MAGNESIUM ISOGLYCYRRHIZINATE [Concomitant]
     Active Substance: MAGNESIUM ISOGLYCYRRHIZINATE
     Route: 042
     Dates: start: 20230828, end: 20230830
  25. RAFUTROMBOPAG OLAMINE [Concomitant]
     Active Substance: RAFUTROMBOPAG OLAMINE
     Route: 048
     Dates: start: 20230620, end: 20230620
  26. INSULIN HUMAN [Concomitant]
     Active Substance: INSULIN HUMAN
     Dosage: 16 IU
     Route: 042
     Dates: start: 20230715, end: 20230719
  27. mosapride citrate tablet [Concomitant]
     Route: 048
     Dates: start: 20230717, end: 20230719
  28. FLUCONAZOLE [Concomitant]
     Active Substance: FLUCONAZOLE
     Route: 042
     Dates: start: 20230823, end: 20230828
  29. Reduced glutathione for injection [Concomitant]
     Route: 042
     Dates: start: 20230828, end: 20230830
  30. Diamine glycyrrhizinate enteric capsule [Concomitant]
     Route: 048
     Dates: start: 20230828
  31. EUCALYPTOL [Concomitant]
     Active Substance: EUCALYPTOL
     Route: 048
     Dates: start: 20230619, end: 20230619
  32. LIMONENE, (+/-)- [Concomitant]
     Active Substance: LIMONENE, (+/-)-
     Route: 048
     Dates: start: 20230619, end: 20230619
  33. pinene [Concomitant]
     Route: 048
     Dates: start: 20230619, end: 20230619
  34. Remidavir deuterium hydrobromide tablets [Concomitant]
     Route: 048
     Dates: start: 20230629
  35. Palonosetron hydrochloride capsules [Concomitant]
     Route: 048
     Dates: start: 20230615, end: 20230615
  36. METHYLPREDNISOLONE SODIUM SUCCINATE [Concomitant]
     Active Substance: METHYLPREDNISOLONE SODIUM SUCCINATE
     Route: 042
     Dates: start: 20230716, end: 20230716

REACTIONS (17)
  - Blood glucose increased [Recovering/Resolving]
  - White blood cell count decreased [Recovered/Resolved]
  - Platelet count decreased [Recovered/Resolved]
  - Neutrophil count decreased [Recovered/Resolved]
  - Pseudomonas infection [Recovering/Resolving]
  - Aspartate aminotransferase increased [Recovering/Resolving]
  - Alanine aminotransferase increased [Recovering/Resolving]
  - Blood alkaline phosphatase increased [Recovering/Resolving]
  - Gamma-glutamyltransferase increased [Recovering/Resolving]
  - Lymphocyte count decreased [Recovered/Resolved]
  - Urinary tract infection fungal [Recovered/Resolved]
  - Bacterial infection [Recovering/Resolving]
  - Pneumocystis jirovecii pneumonia [Not Recovered/Not Resolved]
  - Pneumonia viral [Not Recovered/Not Resolved]
  - COVID-19 [Recovered/Resolved]
  - Febrile infection [Recovered/Resolved]
  - Pneumocystis jirovecii pneumonia [Recovered/Resolved]

NARRATIVE: CASE EVENT DATE: 20230616
